FAERS Safety Report 24832498 (Version 1)
Quarter: 2025Q1

REPORT INFORMATION
  Report Type: Other
  Country: US (occurrence: US)
  Receive Date: 20250110
  Receipt Date: 20250110
  Transmission Date: 20250409
  Serious: Yes (Other)
  Sender: FAGRON COMPOUNDING SERVICES D/B/A FAGRON STERILE SERVICES, WICHITA, KS
  Company Number: US-Fagron Sterile Services-2168841

PATIENT
  Age: 71 Year
  Sex: Male
  Weight: 75.8 kg

DRUGS (2)
  1. CALCIUM CHLORIDE\LIDOCAINE\MAGNESIUM CHLORIDE\PHENYLEPHRINE\POTASSIUM [Suspect]
     Active Substance: CALCIUM CHLORIDE\LIDOCAINE\MAGNESIUM CHLORIDE\PHENYLEPHRINE\POTASSIUM CHLORIDE\SODIUM ACETATE\SODIUM
     Indication: Cataract operation
     Dates: start: 20241031
  2. CALCIUM CHLORIDE\LIDOCAINE\MAGNESIUM CHLORIDE\PHENYLEPHRINE\POTASSIUM [Suspect]
     Active Substance: CALCIUM CHLORIDE\LIDOCAINE\MAGNESIUM CHLORIDE\PHENYLEPHRINE\POTASSIUM CHLORIDE\SODIUM ACETATE\SODIUM
     Indication: Intraocular lens implant

REACTIONS (1)
  - Pupillary light reflex tests abnormal [Recovered/Resolved]

NARRATIVE: CASE EVENT DATE: 20241031
